FAERS Safety Report 11053560 (Version 1)
Quarter: 2015Q2

REPORT INFORMATION
  Report Type: Spontaneous
  Country: TR (occurrence: TR)
  Receive Date: 20150421
  Receipt Date: 20150421
  Transmission Date: 20150821
  Serious: Yes (Other)
  Sender: FDA-Public Use
  Company Number: PHHY2015TR044210

PATIENT

DRUGS (2)
  1. HALOPERIDOL. [Suspect]
     Active Substance: HALOPERIDOL
  2. HALOPERIDOL. [Suspect]
     Active Substance: HALOPERIDOL
     Indication: PSYCHOTIC DISORDER
     Dosage: UNK
     Route: 064

REACTIONS (5)
  - Normal newborn [Unknown]
  - Irritability [Recovered/Resolved]
  - Feeding disorder neonatal [Recovered/Resolved]
  - Pyrexia [Recovered/Resolved]
  - Nephrogenic diabetes insipidus [Recovered/Resolved]
